FAERS Safety Report 7676227 (Version 3)
Quarter: 2013Q4

REPORT INFORMATION
  Report Type: Spontaneous
  Country: FR (occurrence: FR)
  Receive Date: 20101119
  Receipt Date: 20131112
  Transmission Date: 20140711
  Serious: Yes (Hospitalization, Disabling, Other)
  Sender: FDA-Public Use
  Company Number: FR-PFIZER INC-2010148739

PATIENT
  Age: 27 Year
  Sex: Female

DRUGS (2)
  1. CYTOTEC [Suspect]
     Indication: LABOUR INDUCTION
     Dosage: 50 UG, SINGLE
     Route: 067
     Dates: start: 20101110, end: 20101110
  2. TARDYFERON [Concomitant]
     Dosage: 1 DF, DAILY

REACTIONS (2)
  - Off label use [Recovered/Resolved with Sequelae]
  - Uterine rupture [Recovered/Resolved with Sequelae]
